FAERS Safety Report 4753165-6 (Version None)
Quarter: 2005Q3

REPORT INFORMATION
  Report Type: 
  Country: None (occurrence: None)
  Receive Date: 20050823
  Receipt Date: 20050805
  Transmission Date: 20060218
  Serious: Yes (Other)
  Sender: FDA-Public Use
  Company Number: USA0506100087

PATIENT
  Age: 45 Year
  Sex: Female

DRUGS (19)
  1. CYMBALTA [Suspect]
     Indication: NEUROPATHY
     Dosage: 60 MG
     Dates: start: 20050101
  2. LEVOTHYROXINE SODIUM [Concomitant]
  3. CLONIDINE HCL [Concomitant]
  4. POTASSIUM CHLORIDE [Concomitant]
  5. ALBUTEROL SULFATE [Concomitant]
  6. CYCLOBENZAPRINE HCL [Concomitant]
  7. TOPROL-XL [Concomitant]
  8. PREVACID [Concomitant]
  9. PREMARIN [Concomitant]
  10. NASACORT AQ (TRIAMCINOLONE ACETONIDE) [Concomitant]
  11. AZMACORT [Concomitant]
  12. TORSEMIDE [Concomitant]
  13. TRAMADOL HCL [Concomitant]
  14. LIPITOR [Concomitant]
  15. MULTIVITAMINS W/MINERALS [Concomitant]
  16. ASPIRIN [Concomitant]
  17. ZETIA [Concomitant]
  18. PULMICORT [Concomitant]
  19. DIAZEPAM [Concomitant]

REACTIONS (18)
  - BLOOD GLUCOSE INCREASED [None]
  - BLOOD PRESSURE INCREASED [None]
  - BODY TEMPERATURE DECREASED [None]
  - BRADYCARDIA [None]
  - COLD SWEAT [None]
  - DIZZINESS [None]
  - FEELING JITTERY [None]
  - FLUSHING [None]
  - HEART RATE DECREASED [None]
  - HYPERHIDROSIS [None]
  - NAUSEA [None]
  - NERVOUSNESS [None]
  - OXYGEN SATURATION DECREASED [None]
  - RESPIRATORY RATE INCREASED [None]
  - SINUS TACHYCARDIA [None]
  - SYNCOPE [None]
  - SYNCOPE VASOVAGAL [None]
  - TONGUE DISCOLOURATION [None]
